FAERS Safety Report 20183731 (Version 9)
Quarter: 2022Q3

REPORT INFORMATION
  Report Type: Report from Study
  Country: DK (occurrence: None)
  Receive Date: 20211214
  Receipt Date: 20220817
  Transmission Date: 20221026
  Serious: Yes (Hospitalization)
  Sender: FDA-Public Use
  Company Number: DK-ROCHE-2976322

PATIENT
  Age: 64 Year
  Sex: Female
  Weight: 81 kg

DRUGS (57)
  1. GLOFITAMAB [Suspect]
     Active Substance: GLOFITAMAB
     Indication: B-cell lymphoma refractory
     Dosage: DOSE LAST GLOFITAMAB ADMINISTRATION PRIOR SERIOUS ADVERSE EVENT (SAE): 30 MG?START DATE OF MOST RECE
     Route: 042
     Dates: start: 20211014
  2. OBINUTUZUMAB [Suspect]
     Active Substance: OBINUTUZUMAB
     Indication: B-cell lymphoma refractory
     Dosage: DOSE LAST OBINUTUZUMAB ADMINISTRATION PRIOR SERIOUS ADVERSE EVENT (SAE): 1000 MG?START DATE OF MOST
     Route: 042
     Dates: start: 20211007
  3. POLATUZUMAB VEDOTIN [Suspect]
     Active Substance: POLATUZUMAB VEDOTIN
     Indication: B-cell lymphoma refractory
     Dosage: DOSE LAST POLATUZUMAB VEDOTIN ADMINISTRATION PRIOR SERIOUS ADVERSE EVENT (SAE): 174 MG?START DATE OF
     Route: 042
     Dates: start: 20211008
  4. METOCLOPRAMIDE [Concomitant]
     Active Substance: METOCLOPRAMIDE
     Indication: Nausea
     Dates: start: 20211019
  5. INSULIN NOS [Concomitant]
     Active Substance: INSULIN NOS
     Indication: Hyperglycaemia
     Dosage: ONGOING YES
     Dates: start: 20211022
  6. DEXAMETHASONE [Concomitant]
     Active Substance: DEXAMETHASONE
     Indication: Premedication
     Route: 042
     Dates: start: 20211104, end: 20211104
  7. DEXAMETHASONE [Concomitant]
     Active Substance: DEXAMETHASONE
     Route: 042
     Dates: start: 20211125, end: 20211125
  8. DEXAMETHASONE [Concomitant]
     Active Substance: DEXAMETHASONE
     Route: 042
     Dates: start: 20211216, end: 20211216
  9. DEXAMETHASONE [Concomitant]
     Active Substance: DEXAMETHASONE
     Route: 042
     Dates: start: 20220127, end: 20220127
  10. DEXAMETHASONE [Concomitant]
     Active Substance: DEXAMETHASONE
     Route: 042
     Dates: start: 20220310, end: 20220310
  11. DEXAMETHASONE [Concomitant]
     Active Substance: DEXAMETHASONE
     Route: 042
     Dates: start: 20220217, end: 20220217
  12. CLEMASTINE [Concomitant]
     Active Substance: CLEMASTINE
     Indication: Premedication
     Route: 048
     Dates: start: 20211125, end: 20211125
  13. CLEMASTINE [Concomitant]
     Active Substance: CLEMASTINE
     Route: 048
     Dates: start: 20211104, end: 20211104
  14. CLEMASTINE [Concomitant]
     Active Substance: CLEMASTINE
     Route: 048
     Dates: start: 20211216, end: 20211216
  15. CLEMASTINE [Concomitant]
     Active Substance: CLEMASTINE
     Route: 048
     Dates: start: 20220106, end: 20220106
  16. CLEMASTINE [Concomitant]
     Active Substance: CLEMASTINE
     Route: 048
     Dates: start: 20220127, end: 20220127
  17. CLEMASTINE [Concomitant]
     Active Substance: CLEMASTINE
     Dosage: ONGOING NO
     Route: 048
     Dates: start: 20220310, end: 20220310
  18. CLEMASTINE [Concomitant]
     Active Substance: CLEMASTINE
     Dosage: ONGOING NO
     Route: 048
     Dates: start: 20220331, end: 20220331
  19. CLEMASTINE [Concomitant]
     Active Substance: CLEMASTINE
     Route: 048
     Dates: start: 20220421, end: 20220421
  20. CLEMASTINE [Concomitant]
     Active Substance: CLEMASTINE
     Route: 048
     Dates: start: 20220512, end: 20220512
  21. CLEMASTINE [Concomitant]
     Active Substance: CLEMASTINE
     Route: 048
     Dates: start: 20220217, end: 20220217
  22. CLEMASTINE [Concomitant]
     Active Substance: CLEMASTINE
     Route: 048
     Dates: start: 20220602, end: 20220602
  23. METOPROLOL SUCCINATE [Concomitant]
     Active Substance: METOPROLOL SUCCINATE
     Indication: Prophylaxis
     Dates: start: 20170908
  24. ASPIRIN [Concomitant]
     Active Substance: ASPIRIN
     Indication: Anticoagulant therapy
     Dates: start: 20181101
  25. NITROLINGUAL [Concomitant]
     Active Substance: NITROGLYCERIN
     Indication: Chest pain
     Dates: start: 20171109
  26. UNIKALK SILVER [Concomitant]
     Indication: Mineral supplementation
     Dates: start: 20200828
  27. DALTEPARIN [Concomitant]
     Active Substance: DALTEPARIN
     Indication: Prophylaxis
     Dates: start: 20210908, end: 20211125
  28. ACYCLOVIR [Concomitant]
     Active Substance: ACYCLOVIR
     Indication: Prophylaxis
     Dates: start: 20211007
  29. PRADAXA [Concomitant]
     Active Substance: DABIGATRAN ETEXILATE MESYLATE
     Indication: Prophylaxis
     Dates: start: 20211125
  30. HYDROCORTISONE [Concomitant]
     Active Substance: HYDROCORTISONE
     Indication: Dry skin
     Dates: start: 20211118
  31. MOVICOL [Concomitant]
     Active Substance: POLYETHYLENE GLYCOL 3350\POTASSIUM CHLORIDE\SODIUM BICARBONATE\SODIUM CHLORIDE
     Indication: Constipation
     Dates: start: 20211104
  32. URSODIOL [Concomitant]
     Active Substance: URSODIOL
     Indication: Gamma-glutamyltransferase increased
     Dates: start: 20211209
  33. CODEINE [Concomitant]
     Active Substance: CODEINE
     Indication: Flank pain
     Dates: end: 20211229
  34. CODEINE [Concomitant]
     Active Substance: CODEINE
     Indication: Abdominal pain
     Dates: start: 20211229, end: 20211229
  35. ALLOPURINOL [Concomitant]
     Active Substance: ALLOPURINOL
     Dates: start: 20211005
  36. SULFAMETHOXAZOLE\TRIMETHOPRIM [Concomitant]
     Active Substance: SULFAMETHOXAZOLE\TRIMETHOPRIM
     Dates: start: 20211007
  37. SOTROVIMAB [Concomitant]
     Active Substance: SOTROVIMAB
     Indication: COVID-19
     Route: 042
     Dates: start: 20220225, end: 20220226
  38. PENICILLIN V [Concomitant]
     Active Substance: PENICILLIN V
     Indication: Pneumonia
     Dates: start: 20220504, end: 20220511
  39. AMDINOCILLIN PIVOXIL [Concomitant]
     Active Substance: AMDINOCILLIN PIVOXIL
     Indication: Urinary tract infection
     Dates: start: 20220519, end: 20220523
  40. POTASSIUM CHLORIDE [Concomitant]
     Active Substance: POTASSIUM CHLORIDE
     Dates: start: 20211223
  41. MABLET [Concomitant]
     Dates: start: 20211223
  42. GANGIDEN [Concomitant]
     Indication: Constipation
     Dates: start: 20211104
  43. ZOPICLONE [Concomitant]
     Active Substance: ZOPICLONE
     Indication: Insomnia
     Dates: start: 20220106
  44. CETIRIZINE HYDROCHLORIDE [Concomitant]
     Active Substance: CETIRIZINE HYDROCHLORIDE
     Indication: Hypersensitivity
     Dates: start: 20220106
  45. ACETAMINOPHEN [Concomitant]
     Active Substance: ACETAMINOPHEN
     Indication: Pain
     Dates: start: 20171120
  46. ACETAMINOPHEN [Concomitant]
     Active Substance: ACETAMINOPHEN
     Indication: Dyspepsia
     Route: 048
     Dates: start: 20211216, end: 20211216
  47. ACETAMINOPHEN [Concomitant]
     Active Substance: ACETAMINOPHEN
     Route: 048
     Dates: start: 20211125, end: 20211125
  48. ACETAMINOPHEN [Concomitant]
     Active Substance: ACETAMINOPHEN
     Route: 048
     Dates: start: 20220106, end: 20220106
  49. ACETAMINOPHEN [Concomitant]
     Active Substance: ACETAMINOPHEN
     Route: 048
     Dates: start: 20220127, end: 20220127
  50. ACETAMINOPHEN [Concomitant]
     Active Substance: ACETAMINOPHEN
     Dosage: ONGOING NO
     Route: 048
     Dates: start: 20220310, end: 20220310
  51. ACETAMINOPHEN [Concomitant]
     Active Substance: ACETAMINOPHEN
     Dosage: ONGOING NO
     Route: 048
     Dates: start: 20220217, end: 20220217
  52. ACETAMINOPHEN [Concomitant]
     Active Substance: ACETAMINOPHEN
     Route: 048
     Dates: start: 20211104, end: 20211104
  53. ACETAMINOPHEN [Concomitant]
     Active Substance: ACETAMINOPHEN
     Route: 048
     Dates: start: 20220421, end: 20220421
  54. ACETAMINOPHEN [Concomitant]
     Active Substance: ACETAMINOPHEN
     Route: 048
     Dates: start: 20220512, end: 20220512
  55. ACETAMINOPHEN [Concomitant]
     Active Substance: ACETAMINOPHEN
     Dates: start: 20211204
  56. ACETAMINOPHEN [Concomitant]
     Active Substance: ACETAMINOPHEN
     Dates: start: 20211206
  57. ACETAMINOPHEN [Concomitant]
     Active Substance: ACETAMINOPHEN
     Route: 048
     Dates: start: 20220331, end: 20220331

REACTIONS (4)
  - Pyrexia [Recovered/Resolved]
  - Cytokine release syndrome [Recovered/Resolved]
  - Pyrexia [Recovered/Resolved]
  - Pyrexia [Recovered/Resolved]

NARRATIVE: CASE EVENT DATE: 20211106
